FAERS Safety Report 20079927 (Version 1)
Quarter: 2021Q4

REPORT INFORMATION
  Report Type: Spontaneous
  Country: IT (occurrence: IT)
  Receive Date: 20211117
  Receipt Date: 20211117
  Transmission Date: 20220303
  Serious: Yes (Other)
  Sender: FDA-Public Use
  Company Number: None

PATIENT
  Age: 82 Year
  Weight: 60 kg

DRUGS (3)
  1. ROPIVACAINE HYDROCHLORIDE [Suspect]
     Active Substance: ROPIVACAINE HYDROCHLORIDE
     Indication: Anaesthesia
     Dosage: 37.5 MILLIGRAM, TOTAL
     Route: 053
     Dates: start: 20180308, end: 20180315
  2. MEPIVACAINE HYDROCHLORIDE [Suspect]
     Active Substance: MEPIVACAINE HYDROCHLORIDE
     Indication: Anaesthesia
     Dosage: 400 MILLIGRAM, TOTAL
     Dates: start: 20180308, end: 20180315
  3. LIDOCAINE HYDROCHLORIDE [Suspect]
     Active Substance: LIDOCAINE HYDROCHLORIDE
     Indication: Anaesthesia
     Dosage: 100 MILLIGRAM, TOTAL
     Route: 030
     Dates: start: 20180316, end: 20180316

REACTIONS (4)
  - Dysphonia [Recovered/Resolved]
  - Salivary hypersecretion [Recovered/Resolved]
  - Dysarthria [Recovered/Resolved]
  - Nausea [Recovered/Resolved]

NARRATIVE: CASE EVENT DATE: 20180316
